FAERS Safety Report 20909702 (Version 2)
Quarter: 2022Q3

REPORT INFORMATION
  Report Type: Spontaneous
  Country: AU (occurrence: None)
  Receive Date: 20220603
  Receipt Date: 20220719
  Transmission Date: 20221026
  Serious: Yes (Other)
  Sender: FDA-Public Use
  Company Number: AU-PFIZER INC-202200761472

PATIENT
  Age: 77 Year
  Sex: Female

DRUGS (2)
  1. METHOTREXATE [Suspect]
     Active Substance: METHOTREXATE
     Indication: Large granular lymphocytosis
     Route: 065
     Dates: start: 201802, end: 202110
  2. METHOTREXATE [Suspect]
     Active Substance: METHOTREXATE
     Indication: Anaemia

REACTIONS (2)
  - Neoplasm progression [Unknown]
  - Treatment failure [Unknown]
